FAERS Safety Report 12447646 (Version 1)
Quarter: 2016Q2

REPORT INFORMATION
  Report Type: Spontaneous
  Country: GB (occurrence: GB)
  Receive Date: 20160608
  Receipt Date: 20160608
  Transmission Date: 20160815
  Serious: Yes (Other)
  Sender: FDA-Public Use
  Company Number: GB-TEVA-664675ACC

PATIENT
  Age: 18 Year
  Sex: Female
  Weight: 68.03 kg

DRUGS (2)
  1. MIRTAZAPINE. [Suspect]
     Active Substance: MIRTAZAPINE
     Indication: DEPRESSION
     Route: 048
  2. CITALOPRAM [Concomitant]
     Active Substance: CITALOPRAM HYDROBROMIDE

REACTIONS (3)
  - Abnormal weight gain [Not Recovered/Not Resolved]
  - Hypoaesthesia oral [Recovered/Resolved]
  - Panic disorder [Recovered/Resolved]
